FAERS Safety Report 12873371 (Version 1)
Quarter: 2016Q4

REPORT INFORMATION
  Report Type: Spontaneous
  Country: US (occurrence: US)
  Receive Date: 20161021
  Receipt Date: 20161021
  Transmission Date: 20170207
  Serious: No
  Sender: FDA-Public Use
  Company Number: US-ALLERGAN-1519260US

PATIENT
  Age: 77 Year
  Sex: Female
  Weight: 68.27 kg

DRUGS (1)
  1. FML [Suspect]
     Active Substance: FLUOROMETHOLONE
     Indication: BLEPHARITIS
     Dosage: UNK
     Dates: end: 201505

REACTIONS (5)
  - Eye injury [Recovering/Resolving]
  - Pain [Recovering/Resolving]
  - Foreign body in eye [Unknown]
  - Vision blurred [Recovering/Resolving]
  - Discomfort [Recovering/Resolving]

NARRATIVE: CASE EVENT DATE: 201505
